FAERS Safety Report 5015013-9 (Version None)
Quarter: 2006Q2

REPORT INFORMATION
  Report Type: 
  Country: None (occurrence: None)
  Receive Date: 20060414
  Receipt Date: 20060222
  Transmission Date: 20061013
  Serious: No
  Sender: FDA-Public Use
  Company Number: 2006SP000897

PATIENT
  Age: 69 Year
  Sex: Male
  Weight: 95.2554 kg

DRUGS (7)
  1. LUNESTA [Suspect]
     Dosage: 2 MG
     Dates: start: 20060221
  2. LOTREL [Concomitant]
  3. FLOMAX [Concomitant]
  4. METFORMIN HCL [Concomitant]
  5. GLYBURIDE [Concomitant]
  6. ATORVASTATIN CALCIUM [Concomitant]
  7. PIOGLITAZONE HCL [Concomitant]

REACTIONS (2)
  - DRUG INEFFECTIVE [None]
  - INSOMNIA [None]
